FAERS Safety Report 6032487-5 (Version None)
Quarter: 2009Q1

REPORT INFORMATION
  Report Type: 
  Country: None (occurrence: None)
  Receive Date: 20090109
  Receipt Date: 20081117
  Transmission Date: 20090719
  Serious: No
  Sender: FDA-Public Use
  Company Number: A0745675A

PATIENT
  Age: 50 Year
  Sex: Female

DRUGS (7)
  1. TYKERB [Suspect]
     Indication: BREAST CANCER
     Dosage: 5TAB PER DAY
     Route: 048
     Dates: start: 20080811
  2. CITALOPRAM HYDROBROMIDE [Concomitant]
  3. TRIAMTERENE AND HYDROCHLOROTHIAZIDE [Concomitant]
  4. DIOVAN [Concomitant]
  5. KEFLEX [Concomitant]
  6. ZYPREXA [Concomitant]
  7. DECADRON [Concomitant]

REACTIONS (4)
  - BLISTER [None]
  - ORAL HERPES [None]
  - SKIN LESION [None]
  - SKIN ULCER [None]
